FAERS Safety Report 11794469 (Version 1)
Quarter: 2015Q4

REPORT INFORMATION
  Report Type: Spontaneous
  Country: FR (occurrence: FR)
  Receive Date: 20151202
  Receipt Date: 20151202
  Transmission Date: 20160305
  Serious: Yes (Hospitalization, Other)
  Sender: FDA-Public Use
  Company Number: FR-GLAXOSMITHKLINE-B0862282A

PATIENT
  Age: 40 Year
  Sex: Male

DRUGS (17)
  1. RIFATER [Concomitant]
     Active Substance: ISONIAZID\PYRAZINAMIDE\RIFAMPIN
     Indication: PRODUCT USED FOR UNKNOWN INDICATION
     Dosage: UNK
  2. INEXIUM [Concomitant]
     Active Substance: ESOMEPRAZOLE
     Indication: GASTRITIS
     Route: 065
     Dates: start: 20120907, end: 20121212
  3. NEFOPAM [Concomitant]
     Active Substance: NEFOPAM
     Route: 065
     Dates: start: 201211
  4. KIVEXA [Suspect]
     Active Substance: ABACAVIR SULFATE\LAMIVUDINE
     Indication: HIV INFECTION
     Route: 048
     Dates: start: 20121122, end: 20121203
  5. RIFINAH [Suspect]
     Active Substance: ISONIAZID\RIFAMPIN
     Indication: TUBERCULOSIS
     Route: 065
     Dates: start: 20121023
  6. TRAMADOL. [Concomitant]
     Active Substance: TRAMADOL
     Route: 065
     Dates: start: 201211
  7. ISENTRESS [Suspect]
     Active Substance: RALTEGRAVIR POTASSIUM
     Indication: HIV INFECTION
     Route: 048
     Dates: start: 20121023, end: 20121212
  8. RIFATER [Concomitant]
     Active Substance: ISONIAZID\PYRAZINAMIDE\RIFAMPIN
     Indication: TUBERCULOSIS
     Route: 065
     Dates: start: 20120824, end: 20121023
  9. BACTRIM [Suspect]
     Active Substance: SULFAMETHOXAZOLE\TRIMETHOPRIM
     Indication: TUBERCULOSIS
     Route: 048
     Dates: start: 20120824, end: 20121212
  10. FONDAPARINUX [Concomitant]
     Active Substance: FONDAPARINUX
     Indication: PULMONARY EMBOLISM
     Route: 065
     Dates: start: 20121121
  11. HYDROXYZINE [Concomitant]
     Active Substance: HYDROXYZINE\HYDROXYZINE HYDROCHLORIDE
     Route: 065
     Dates: start: 201211
  12. ETHAMBUTOL [Concomitant]
     Active Substance: ETHAMBUTOL HYDROCHLORIDE
     Indication: TUBERCULOSIS
     Route: 065
     Dates: start: 20120824, end: 20121023
  13. TRUVADA [Suspect]
     Active Substance: EMTRICITABINE\TENOFOVIR DISOPROXIL FUMARATE
     Indication: HIV INFECTION
     Route: 048
     Dates: start: 20121023, end: 20121212
  14. PARACETAMOL [Concomitant]
     Active Substance: ACETAMINOPHEN
     Route: 065
     Dates: start: 201211
  15. PHLOROGLUCINOL [Concomitant]
     Active Substance: PHLOROGLUCINOL
     Route: 065
     Dates: start: 201211
  16. ATRIPLA [Suspect]
     Active Substance: EFAVIRENZ\EMTRICITABINE\TENOFOVIR DISOPROXIL FUMARATE
     Indication: HIV INFECTION
     Route: 048
     Dates: start: 20120905, end: 20121023
  17. TRIFLUCAN [Concomitant]
     Active Substance: FLUCONAZOLE
     Indication: OESOPHAGEAL CANDIDIASIS
     Route: 065
     Dates: start: 20120907, end: 20121212

REACTIONS (39)
  - Skin lesion [Unknown]
  - Acarodermatitis [Unknown]
  - Hyponatraemia [Unknown]
  - Genital lesion [Unknown]
  - Abdominal pain [Unknown]
  - Asthenia [Unknown]
  - Pigmentation disorder [Unknown]
  - Leukocytosis [Unknown]
  - Eosinophilia [Unknown]
  - Hyperthermia malignant [Unknown]
  - Cholestasis [Unknown]
  - Skin plaque [Unknown]
  - Eyelid oedema [Unknown]
  - Sepsis [Unknown]
  - Inflammation [Unknown]
  - C-reactive protein increased [Unknown]
  - Productive cough [Unknown]
  - Hypotonia [Unknown]
  - Haemolytic anaemia [Unknown]
  - Face oedema [Unknown]
  - Cardiac murmur [Unknown]
  - Productive cough [Unknown]
  - Hepatocellular injury [Unknown]
  - Epidermal necrosis [Unknown]
  - Blood immunoglobulin G increased [Unknown]
  - Eczema [Unknown]
  - Diarrhoea [Unknown]
  - Rash papular [Unknown]
  - Dyspepsia [Unknown]
  - Hypotension [Unknown]
  - Papule [Unknown]
  - Pyrexia [Unknown]
  - Condition aggravated [Unknown]
  - Lymphopenia [Unknown]
  - Acanthosis [Unknown]
  - Hypergammaglobulinaemia [Unknown]
  - Drug reaction with eosinophilia and systemic symptoms [Recovering/Resolving]
  - Rash pruritic [Unknown]
  - Lip oedema [Unknown]

NARRATIVE: CASE EVENT DATE: 2012
